FAERS Safety Report 17988240 (Version 1)
Quarter: 2020Q3

REPORT INFORMATION
  Report Type: Spontaneous
  Country: US (occurrence: US)
  Receive Date: 20200706
  Receipt Date: 20200706
  Transmission Date: 20201103
  Serious: Yes (Hospitalization, Other)
  Sender: FDA-Public Use
  Company Number: None

PATIENT

DRUGS (1)
  1. ABILIFY MAINTENA [Suspect]
     Active Substance: ARIPIPRAZOLE
     Dosage: ?          OTHER FREQUENCY:MONTHLY;?

REACTIONS (3)
  - Retching [None]
  - Drug ineffective [None]
  - Nausea [None]

NARRATIVE: CASE EVENT DATE: 20200706
